FAERS Safety Report 21341609 (Version 1)
Quarter: 2022Q3

REPORT INFORMATION
  Report Type: Spontaneous
  Country: IL (occurrence: IL)
  Receive Date: 20220916
  Receipt Date: 20220916
  Transmission Date: 20221027
  Serious: Yes (Hospitalization, Other)
  Sender: FDA-Public Use
  Company Number: IL-STRIDES ARCOLAB LIMITED-2022SP011649

PATIENT
  Age: 75 Year
  Sex: Male

DRUGS (1)
  1. PREDNISOLONE [Suspect]
     Active Substance: PREDNISOLONE
     Indication: Prostate cancer
     Dosage: 5 MILLIGRAM PER DAY
     Route: 065

REACTIONS (7)
  - Hemianopia [Recovered/Resolved]
  - Vasogenic cerebral oedema [Recovered/Resolved]
  - Hemiparesis [Recovered/Resolved]
  - Haemorrhage [Recovered/Resolved]
  - Brain abscess [Recovered/Resolved]
  - Upper respiratory tract infection [Unknown]
  - Nocardiosis [Recovered/Resolved]
